FAERS Safety Report 9263996 (Version 3)
Quarter: 2013Q2

REPORT INFORMATION
  Report Type: Spontaneous
  Country: SK (occurrence: SK)
  Receive Date: 20130430
  Receipt Date: 20130520
  Transmission Date: 20140414
  Serious: Yes (Other)
  Sender: FDA-Public Use
  Company Number: SK-GLAXOSMITHKLINE-B0888316A

PATIENT
  Age: 29 Year
  Sex: Male

DRUGS (4)
  1. TROBALT [Suspect]
     Indication: EPILEPSY
     Dosage: 100MG THREE TIMES PER DAY
     Route: 065
     Dates: start: 20130118, end: 20130207
  2. LACOSAMIDE [Concomitant]
     Dates: start: 201103
  3. LEVETIRACETAM [Concomitant]
     Dates: start: 201004
  4. VALPROATE [Concomitant]
     Dosage: 500MG TWICE PER DAY

REACTIONS (14)
  - Mental impairment [Recovered/Resolved]
  - Suicidal ideation [Recovered/Resolved]
  - Tongue paralysis [Recovering/Resolving]
  - Visual impairment [Recovered/Resolved]
  - Photopsia [Recovering/Resolving]
  - Gait disturbance [Recovering/Resolving]
  - Headache [Recovering/Resolving]
  - Urine output decreased [Recovering/Resolving]
  - Slow speech [Recovering/Resolving]
  - Obsessive-compulsive disorder [Recovering/Resolving]
  - Urinary hesitation [Recovering/Resolving]
  - Speech disorder [Recovering/Resolving]
  - Feeling abnormal [Recovering/Resolving]
  - Psychotic disorder [Recovering/Resolving]
